FAERS Safety Report 8576886-6 (Version None)
Quarter: 2012Q3

REPORT INFORMATION
  Report Type: 
  Country: None (occurrence: None)
  Receive Date: 20120807
  Receipt Date: 20120803
  Transmission Date: 20120928
  Serious: Yes (Hospitalization)
  Sender: FDA-Public Use
  Company Number: US-TEVA-352197USA

PATIENT
  Sex: Female

DRUGS (1)
  1. ACTIQ [Suspect]
     Route: 048
     Dates: start: 20100101

REACTIONS (1)
  - RECTOCELE [None]
